FAERS Safety Report 8127266-9 (Version None)
Quarter: 2012Q1

REPORT INFORMATION
  Report Type: 
  Country: None (occurrence: None)
  Receive Date: 20120210
  Receipt Date: 20120208
  Transmission Date: 20120608
  Serious: Yes (Death)
  Sender: FDA-Public Use
  Company Number: PHHY2012NL010992

PATIENT
  Sex: Female

DRUGS (2)
  1. ZOLEDRONOC ACID [Suspect]
     Dosage: 5 MG/100ML, 1X PER 364 DAYS
     Route: 042
     Dates: start: 20110307
  2. PREDNISONE TAB [Concomitant]
     Indication: PULMONARY FIBROSIS

REACTIONS (1)
  - DEATH [None]
